FAERS Safety Report 14852936 (Version 4)
Quarter: 2020Q2

REPORT INFORMATION
  Report Type: Spontaneous
  Country: US (occurrence: US)
  Receive Date: 20180507
  Receipt Date: 20200612
  Transmission Date: 20200713
  Serious: Yes (Hospitalization, Other)
  Sender: FDA-Public Use
  Company Number: US-UNITED THERAPEUTICS-UNT-2018-006047

PATIENT
  Age: 61 Year
  Sex: Female
  Weight: 62.1 kg

DRUGS (14)
  1. REMODULIN [Suspect]
     Active Substance: TREPROSTINIL
     Dosage: UNK, CONTINUING (TOTAL DAILY DOSE: 0.06 ?G/KG)
     Route: 041
     Dates: start: 20171031
  2. VITAMIN D [Concomitant]
     Active Substance: VITAMIN D NOS
     Indication: SUPPLEMENTATION THERAPY
     Dosage: UNK (TOTAL DAILY DOSE: 1000 UNITS)
     Route: 065
     Dates: start: 20150723
  3. REMODULIN [Suspect]
     Active Substance: TREPROSTINIL
     Indication: PULMONARY ARTERIAL HYPERTENSION
     Dosage: 0.060 ?G/KG, CONTINUING
     Route: 041
     Dates: start: 20161230, end: 201805
  4. ALBUTEROL. [Concomitant]
     Active Substance: ALBUTEROL
     Indication: ASTHMA
     Dosage: UNK, PRN, EVERY 4 HOURS (TOTAL DAILY DOSE: 2 PUFFS)
     Route: 065
     Dates: start: 20160625, end: 20171221
  5. LASIX [Concomitant]
     Active Substance: FUROSEMIDE
     Indication: OEDEMA PERIPHERAL
     Dosage: UNK (TOTAL DAILY DOSE: 40 MG)
     Route: 065
     Dates: start: 20161227
  6. REMODULIN [Suspect]
     Active Substance: TREPROSTINIL
     Indication: PULMONARY HYPERTENSION
     Dosage: 0.002 ?G/KG, CONTINUING
     Route: 041
     Dates: start: 20161222
  7. ADEMPAS [Suspect]
     Active Substance: RIOCIGUAT
     Dosage: 0.5 MG, TID
     Route: 048
     Dates: start: 20170306
  8. ADEMPAS [Suspect]
     Active Substance: RIOCIGUAT
     Indication: PULMONARY HYPERTENSION
     Dosage: UNK, TID (TOTAL DAILY DOSE: 7.5 MG)
     Route: 048
     Dates: start: 20170828
  9. TYLENOL [Concomitant]
     Active Substance: ACETAMINOPHEN
     Indication: PAIN MANAGEMENT
     Dosage: UNK, PRN, EVERY 6 HOURS (TOTAL DAILY DOSE: 1000 MG)
     Route: 065
     Dates: start: 20170109
  10. POTASSIUM CHLORIDE. [Concomitant]
     Active Substance: POTASSIUM CHLORIDE
     Indication: ELECTROLYTE SUBSTITUTION THERAPY
     Dosage: UNK (TOTAL DAILY DOSE: 20 MEQ)
     Route: 065
     Dates: start: 20170109
  11. WARFARIN [Concomitant]
     Active Substance: WARFARIN
     Dosage: UNK, MON, TUES, SAT (TOTAL DAILY DOSE: 5 MG)
     Route: 065
     Dates: start: 20171221, end: 20190201
  12. WARFARIN [Concomitant]
     Active Substance: WARFARIN
     Indication: PULMONARY EMBOLISM
     Dosage: UNK, SUN, WED, THURS, FRI (TOTAL DAILY DOSE: 2.5 MG)
     Route: 065
     Dates: start: 20171221, end: 20190201
  13. SYMBICORT [Concomitant]
     Active Substance: BUDESONIDE\FORMOTEROL FUMARATE DIHYDRATE
     Indication: ASTHMA
     Dosage: UNK (TOTAL DAILY DOSE: 4 PUFFS)
     Route: 065
     Dates: start: 20161026
  14. ZOFRAN [Concomitant]
     Active Substance: ONDANSETRON HYDROCHLORIDE
     Indication: NAUSEA
     Dosage: UNK, PRN, EVERY 8 HOURS (TOTAL DAILY DOSE: 4 MG)
     Route: 065
     Dates: start: 20170322

REACTIONS (3)
  - Chest wall abscess [Recovered/Resolved]
  - Vascular device infection [Unknown]
  - Drug ineffective [Unknown]

NARRATIVE: CASE EVENT DATE: 20180429
